FAERS Safety Report 12380265 (Version 1)
Quarter: 2016Q2

REPORT INFORMATION
  Report Type: Spontaneous
  Country: US (occurrence: US)
  Receive Date: 20160518
  Receipt Date: 20160518
  Transmission Date: 20160815
  Serious: No
  Sender: FDA-Public Use
  Company Number: US-ASTRAZENECA-2016SE46571

PATIENT
  Sex: Female

DRUGS (2)
  1. MAGNESIUM STEARATE [Suspect]
     Active Substance: MAGNESIUM STEARATE
     Route: 065
  2. CRESTOR [Suspect]
     Active Substance: ROSUVASTATIN CALCIUM
     Indication: TYPE IIA HYPERLIPIDAEMIA
     Route: 048

REACTIONS (2)
  - Hypertension [Unknown]
  - Muscular weakness [Unknown]
